FAERS Safety Report 8241677-2 (Version None)
Quarter: 2012Q1

REPORT INFORMATION
  Report Type: 
  Country: None (occurrence: None)
  Receive Date: 20120328
  Receipt Date: 20120319
  Transmission Date: 20120608
  Serious: Yes (Hospitalization)
  Sender: FDA-Public Use
  Company Number: GB-ALLERGAN-1202172US

PATIENT
  Age: 22 Year
  Sex: Female

DRUGS (5)
  1. VISTABEL [Suspect]
  2. VISTABEL [Suspect]
     Indication: SKIN WRINKLING
     Dosage: 25 UNITS IN GLABELLA
     Route: 030
     Dates: start: 20120210, end: 20120210
  3. VISTABEL [Suspect]
     Dosage: 5 UNITS IN FRONTALIS
     Dates: start: 20120210, end: 20120210
  4. VISTABEL [Suspect]
     Dosage: 14 UNITS IN FRONTALIS
     Dates: start: 20110804, end: 20110804
  5. VISTABEL [Suspect]
     Dosage: 25 UNITS IN GLABELLA
     Dates: start: 20110804, end: 20110804

REACTIONS (15)
  - MALAISE [None]
  - VISION BLURRED [None]
  - LIP SWELLING [None]
  - HYPOAESTHESIA [None]
  - ASTHENIA [None]
  - LYMPHADENOPATHY [None]
  - ADVERSE DRUG REACTION [None]
  - DRY MOUTH [None]
  - DIZZINESS [None]
  - DYSPNOEA [None]
  - DYSPHAGIA [None]
  - SWELLING FACE [None]
  - EYE SWELLING [None]
  - SUNBURN [None]
  - INFLUENZA [None]
